FAERS Safety Report 8787729 (Version 1)
Quarter: 2012Q4

REPORT INFORMATION
  Report Type: 
  Country: US (occurrence: US)
  Receive Date: 20120914
  Receipt Date: 20120914
  Transmission Date: 20130627
  Serious: No
  Sender: FDA-Public Use
  Company Number: US-VERTEX PHARMACEUTICAL INC.-AE-2012-007400

PATIENT
  Age: 55 None
  Sex: Male
  Weight: 79.91 kg

DRUGS (4)
  1. INCIVEK [Suspect]
     Indication: HEPATITIS C
     Route: 048
     Dates: start: 20120516, end: 20120617
  2. INCIVEK [Suspect]
     Route: 048
     Dates: start: 20120618, end: 20120627
  3. RIBAVIRIN [Concomitant]
     Indication: HEPATITIS C
     Route: 048
     Dates: start: 20120516
  4. PEGASYS [Concomitant]
     Indication: HEPATITIS C
     Route: 058
     Dates: start: 20120516

REACTIONS (14)
  - Incorrect dose administered [Recovered/Resolved]
  - Vision blurred [Not Recovered/Not Resolved]
  - Body temperature increased [Not Recovered/Not Resolved]
  - Headache [Not Recovered/Not Resolved]
  - Chills [Not Recovered/Not Resolved]
  - Insomnia [Not Recovered/Not Resolved]
  - Abdominal pain upper [Not Recovered/Not Resolved]
  - Rash generalised [Not Recovered/Not Resolved]
  - Haematochezia [Not Recovered/Not Resolved]
  - Anal pruritus [Not Recovered/Not Resolved]
  - Haemorrhoids [Not Recovered/Not Resolved]
  - Pruritus [Not Recovered/Not Resolved]
  - Dysgeusia [Not Recovered/Not Resolved]
  - Nausea [Not Recovered/Not Resolved]
